FAERS Safety Report 24177471 (Version 1)
Quarter: 2024Q3

REPORT INFORMATION
  Report Type: Spontaneous
  Country: IL (occurrence: IL)
  Receive Date: 20240806
  Receipt Date: 20240806
  Transmission Date: 20241016
  Serious: Yes (Other)
  Sender: SANDOZ
  Company Number: IL-002147023-NVSC2023IL232261

PATIENT

DRUGS (2)
  1. CEFAZOLIN [Suspect]
     Active Substance: CEFAZOLIN
     Indication: Soft tissue infection
     Dosage: UNK UNK, QD (SINGLE DOSE)
     Route: 065
  2. CEFAZOLIN [Suspect]
     Active Substance: CEFAZOLIN
     Indication: Beta haemolytic streptococcal infection

REACTIONS (1)
  - Blood culture positive [Unknown]
